FAERS Safety Report 8838891 (Version 1)
Quarter: 2012Q4

REPORT INFORMATION
  Report Type: Spontaneous
  Country: US (occurrence: None)
  Receive Date: 20121011
  Receipt Date: 20121011
  Transmission Date: 20130627
  Serious: No
  Sender: FDA-Public Use
  Company Number: None

PATIENT
  Sex: Female

DRUGS (1)
  1. FORTEO [Suspect]
     Indication: SENILE OSTEOPOROSIS
     Dosage: 20MCG DAILY SQ
     Route: 058
     Dates: start: 20120208, end: 20121004

REACTIONS (6)
  - Injection site pain [None]
  - Injection site erythema [None]
  - Muscle spasms [None]
  - Arthralgia [None]
  - Back pain [None]
  - Walking aid user [None]
